FAERS Safety Report 26022928 (Version 1)
Quarter: 2025Q4

REPORT INFORMATION
  Report Type: Spontaneous
  Country: US (occurrence: US)
  Receive Date: 20251110
  Receipt Date: 20251110
  Transmission Date: 20260118
  Serious: No
  Sender: SAREPTA THERAPEUTICS
  Company Number: US-SAREPTA THERAPEUTICS INC.-SRP2025-006430

PATIENT
  Sex: Male
  Weight: 32.4 kg

DRUGS (1)
  1. ELEVIDYS [Suspect]
     Active Substance: DELANDISTROGENE MOXEPARVOVEC-ROKL
     Indication: Product used for unknown indication
     Dosage: 310 MILLILITER, SINGLE
     Dates: start: 20250814, end: 20250814

REACTIONS (2)
  - Off label use [Unknown]
  - Device occlusion [Unknown]
